FAERS Safety Report 23244420 (Version 1)
Quarter: 2023Q4

REPORT INFORMATION
  Report Type: Spontaneous
  Country: PL (occurrence: PL)
  Receive Date: 20231130
  Receipt Date: 20231130
  Transmission Date: 20240109
  Serious: Yes (Hospitalization)
  Sender: FDA-Public Use
  Company Number: None

PATIENT
  Age: 74 Year
  Sex: Female
  Weight: 81 kg

DRUGS (7)
  1. IVABRADINE [Concomitant]
     Active Substance: IVABRADINE
     Indication: Tachycardia paroxysmal
     Route: 050
     Dates: start: 20230601, end: 20230921
  2. METFORMIN HYDROCHLORIDE [Concomitant]
     Active Substance: METFORMIN HYDROCHLORIDE
     Indication: Type 2 diabetes mellitus
     Route: 050
     Dates: start: 20230920
  3. FERRIC DERISOMALTOSE [Suspect]
     Active Substance: FERRIC DERISOMALTOSE
     Indication: Iron deficiency anaemia
     Route: 050
     Dates: start: 20230921, end: 20230921
  4. ALLOPURINOL [Concomitant]
     Active Substance: ALLOPURINOL
     Indication: Hyperuricaemia
     Route: 050
     Dates: start: 20230601
  5. SOTALOL HYDROCHLORIDE [Concomitant]
     Active Substance: SOTALOL HYDROCHLORIDE
     Indication: Tachycardia paroxysmal
     Route: 050
     Dates: start: 20230601, end: 20230921
  6. TULIP [Concomitant]
     Indication: Type IIa hyperlipidaemia
     Route: 050
     Dates: start: 20230601
  7. VANCOMYCIN HYDROCHLORIDE [Concomitant]
     Active Substance: VANCOMYCIN HYDROCHLORIDE
     Indication: Enterocolitis bacterial
     Route: 050
     Dates: start: 20230912

REACTIONS (4)
  - Atrioventricular block second degree [Recovered/Resolved]
  - Nausea [Recovered/Resolved]
  - Back pain [Recovered/Resolved]
  - Feeling hot [Recovered/Resolved]

NARRATIVE: CASE EVENT DATE: 20230921
